FAERS Safety Report 5443432-5 (Version None)
Quarter: 2007Q3

REPORT INFORMATION
  Report Type: 
  Country: None (occurrence: None)
  Receive Date: 20070905
  Receipt Date: 20070823
  Transmission Date: 20080115
  Serious: Yes (Hospitalization)
  Sender: FDA-Public Use
  Company Number: B0485389A

PATIENT
  Age: 7 Year
  Sex: Female

DRUGS (3)
  1. COTRIM [Suspect]
     Indication: SCRUB TYPHUS
     Route: 065
  2. CEFTAZIDIME [Suspect]
     Indication: SCRUB TYPHUS
     Route: 065
  3. DOXYCYCLINE [Suspect]
     Indication: SCRUB TYPHUS
     Route: 065

REACTIONS (13)
  - ALANINE AMINOTRANSFERASE INCREASED [None]
  - ASPARTATE AMINOTRANSFERASE INCREASED [None]
  - BLISTER [None]
  - BLOOD ALKALINE PHOSPHATASE INCREASED [None]
  - CHOLESTASIS [None]
  - HEPATOMEGALY [None]
  - JAUNDICE [None]
  - LIVER DISORDER [None]
  - OCULAR ICTERUS [None]
  - PYREXIA [None]
  - RASH MACULO-PAPULAR [None]
  - TOXIC EPIDERMAL NECROLYSIS [None]
  - VANISHING BILE DUCT SYNDROME [None]
